FAERS Safety Report 12758256 (Version 1)
Quarter: 2016Q3

REPORT INFORMATION
  Report Type: Spontaneous
  Country: KR (occurrence: KR)
  Receive Date: 20160919
  Receipt Date: 20160919
  Transmission Date: 20161109
  Serious: Yes (Life-Threatening, Other)
  Sender: FDA-Public Use
  Company Number: KR-GLAXOSMITHKLINE-KR2016135152

PATIENT
  Age: 52 Year
  Sex: Male

DRUGS (6)
  1. ROPINIROLE. [Suspect]
     Active Substance: ROPINIROLE
  2. MODAFINIL. [Suspect]
     Active Substance: MODAFINIL
  3. ROPINIROLE. [Suspect]
     Active Substance: ROPINIROLE
  4. METHYLPHENIDATE HYDROCHLORIDE. [Suspect]
     Active Substance: METHYLPHENIDATE HYDROCHLORIDE
  5. AMANTADINE [Suspect]
     Active Substance: AMANTADINE
  6. APO LEVOCARB [Suspect]
     Active Substance: CARBIDOPA\LEVODOPA

REACTIONS (1)
  - Serotonin syndrome [Recovered/Resolved]
